FAERS Safety Report 4286632-2 (Version None)
Quarter: 2004Q1

REPORT INFORMATION
  Report Type: 
  Country: None (occurrence: None)
  Receive Date: 20040204
  Receipt Date: 20040127
  Transmission Date: 20041129
  Serious: Yes (Death)
  Sender: FDA-Public Use
  Company Number: US-JNJFOC-20031002548

PATIENT
  Age: 63 Year
  Sex: Male

DRUGS (1)
  1. REGRANEX [Suspect]
     Indication: DIABETIC ULCER
     Dosage: 1 DOSE(S), 1 IN 1 TOTAL, TOPICAL
     Route: 061
     Dates: start: 20011102, end: 20011102

REACTIONS (4)
  - DIALYSIS [None]
  - LEG AMPUTATION [None]
  - RENAL FAILURE [None]
  - WOUND INFECTION [None]
